FAERS Safety Report 17073350 (Version 1)
Quarter: 2019Q4

REPORT INFORMATION
  Report Type: Spontaneous
  Country: FR (occurrence: FR)
  Receive Date: 20191126
  Receipt Date: 20191126
  Transmission Date: 20200122
  Serious: Yes (Hospitalization, Other)
  Sender: FDA-Public Use
  Company Number: FR-AUROBINDO-AUR-APL-2019-074175

PATIENT
  Age: 80 Year
  Sex: Female

DRUGS (4)
  1. FUROSEMIDE. [Suspect]
     Active Substance: FUROSEMIDE
     Indication: PRODUCT USED FOR UNKNOWN INDICATION
     Dosage: 40 MILLIGRAM, ONE TOTOAL
     Route: 048
     Dates: start: 20191025, end: 20191025
  2. LANSOPRAZOLE. [Concomitant]
     Active Substance: LANSOPRAZOLE
     Indication: PRODUCT USED FOR UNKNOWN INDICATION
     Dosage: 15 MILLIGRAM, ONE TOTOAL
     Route: 048
     Dates: start: 20191025, end: 20191025
  3. BISOPROLOL [Suspect]
     Active Substance: BISOPROLOL
     Indication: PRODUCT USED FOR UNKNOWN INDICATION
     Dosage: 5 MILLIGRAM, ONE TOTOAL
     Route: 048
     Dates: start: 20191025, end: 20191025
  4. LEVOTHYROX [Concomitant]
     Active Substance: LEVOTHYROXINE
     Indication: PRODUCT USED FOR UNKNOWN INDICATION
     Dosage: 1 DOSAGE FORM, ONE TOTOAL
     Route: 048
     Dates: start: 20191025, end: 20191025

REACTIONS (3)
  - Atrioventricular block [Recovered/Resolved]
  - Bradycardia [Recovered/Resolved]
  - Wrong drug [Recovered/Resolved]

NARRATIVE: CASE EVENT DATE: 20191025
